FAERS Safety Report 5505025-0 (Version None)
Quarter: 2007Q4

REPORT INFORMATION
  Report Type: 
  Country: None (occurrence: None)
  Receive Date: 20071031
  Receipt Date: 20071031
  Transmission Date: 20080405
  Serious: No
  Sender: FDA-Public Use
  Company Number: None

PATIENT
  Age: 4 Year
  Sex: Female
  Weight: 27.2158 kg

DRUGS (2)
  1. SINGULAIR [Suspect]
     Indication: ASTHMA
     Dates: start: 20050823, end: 20060317
  2. SINGULAIR [Suspect]
     Indication: HYPERSENSITIVITY
     Dates: start: 20050823, end: 20060317

REACTIONS (2)
  - AGGRESSION [None]
  - ANGER [None]
